FAERS Safety Report 12086079 (Version 1)
Quarter: 2016Q1

REPORT INFORMATION
  Report Type: Spontaneous
  Country: US (occurrence: US)
  Receive Date: 20160217
  Receipt Date: 20160217
  Transmission Date: 20160526
  Serious: No
  Sender: FDA-Public Use
  Company Number: US-AMARIN PHARMA, INC.-2015AMR000170

PATIENT
  Age: 65 Year
  Sex: Male
  Weight: 92.16 kg

DRUGS (3)
  1. VASCEPA [Suspect]
     Active Substance: ICOSAPENT ETHYL
     Indication: PRODUCT USED FOR UNKNOWN INDICATION
     Route: 048
     Dates: start: 20150512, end: 20151217
  2. RAMIPIRIL [Concomitant]
     Indication: HYPERTENSION
     Route: 048
     Dates: start: 2012
  3. ATORVASTATIN [Concomitant]
     Active Substance: ATORVASTATIN
     Indication: CARDIOVASCULAR EVENT PROPHYLAXIS
     Route: 048
     Dates: start: 201403, end: 20150902

REACTIONS (2)
  - Intentional product use issue [Unknown]
  - Arthralgia [Not Recovered/Not Resolved]
